FAERS Safety Report 8844446 (Version 1)
Quarter: 2012Q4

REPORT INFORMATION
  Report Type: Spontaneous
  Country: IN (occurrence: None)
  Receive Date: 20121012
  Receipt Date: 20121012
  Transmission Date: 20130627
  Serious: Yes (Other)
  Sender: FDA-Public Use
  Company Number: 2012P1060751

PATIENT
  Age: 2 Year
  Sex: Male
  Weight: 14 kg

DRUGS (7)
  1. ETHAMBUTOL [Suspect]
  2. ISONIAZID [Suspect]
  3. OFLOXACIN [Suspect]
  4. RIFAMPICIN (NO PREF. NAME) [Suspect]
  5. STREPTOMYCIN [Suspect]
  6. UNSPECIFIED STEROIDS [Concomitant]
  7. PHENYTOIN [Concomitant]

REACTIONS (2)
  - Convulsion [None]
  - Meningitis [None]
